FAERS Safety Report 13578217 (Version 2)
Quarter: 2017Q2

REPORT INFORMATION
  Report Type: Report from Study
  Country: IL (occurrence: IL)
  Receive Date: 20170524
  Receipt Date: 20170601
  Transmission Date: 20170830
  Serious: Yes (Other)
  Sender: FDA-Public Use
  Company Number: IL-B.I. PHARMACEUTICALS,INC./RIDGEFIELD-2017-BI-028175

PATIENT

DRUGS (1)
  1. PERSANTIN AMPULE [Suspect]
     Active Substance: DIPYRIDAMOLE
     Indication: CARDIAC PHARMACOLOGIC STRESS TEST
     Route: 065

REACTIONS (1)
  - Atrioventricular block second degree [Recovered/Resolved]
